FAERS Safety Report 12194888 (Version 1)
Quarter: 2016Q1

REPORT INFORMATION
  Report Type: Spontaneous
  Country: US (occurrence: None)
  Receive Date: 20160318
  Receipt Date: 20160318
  Transmission Date: 20160526
  Serious: Yes (Hospitalization)
  Sender: FDA-Public Use
  Company Number: None

PATIENT
  Age: 44 Year
  Sex: Male

DRUGS (1)
  1. HARVONI [Suspect]
     Active Substance: LEDIPASVIR\SOFOSBUVIR
     Indication: HEPATITIS C
     Dosage: 1 TABLET DAILY PO
     Route: 048
     Dates: start: 20160216

REACTIONS (3)
  - Anxiety [None]
  - Depression [None]
  - Paranoia [None]

NARRATIVE: CASE EVENT DATE: 20160307
